FAERS Safety Report 12607552 (Version 1)
Quarter: 2016Q3

REPORT INFORMATION
  Report Type: Report from Study
  Country: US (occurrence: US)
  Receive Date: 20160729
  Receipt Date: 20160729
  Transmission Date: 20161109
  Serious: Yes (Death)
  Sender: FDA-Public Use
  Company Number: US-JNJFOC-20160724462

PATIENT
  Age: 63 Year
  Sex: Female
  Weight: 67.13 kg

DRUGS (3)
  1. VINCRISTINE SULFATE. [Suspect]
     Active Substance: VINCRISTINE SULFATE
     Indication: PLASMA CELL MYELOMA
     Dosage: 2 CYCLES
     Route: 042
     Dates: start: 20110415, end: 20110506
  2. DOXIL [Suspect]
     Active Substance: DOXORUBICIN HYDROCHLORIDE
     Indication: PLASMA CELL MYELOMA
     Route: 042
     Dates: start: 20110415, end: 20110506
  3. GENTAMICIN. [Suspect]
     Active Substance: GENTAMICIN
     Indication: PLASMA CELL MYELOMA
     Dosage: 1 CYCLE
     Route: 042
     Dates: start: 20110506, end: 20110506

REACTIONS (1)
  - Pneumonia [Fatal]

NARRATIVE: CASE EVENT DATE: 20110527
